FAERS Safety Report 21865149 (Version 1)
Quarter: 2023Q1

REPORT INFORMATION
  Report Type: Spontaneous
  Country: GB (occurrence: GB)
  Receive Date: 20230116
  Receipt Date: 20230116
  Transmission Date: 20230418
  Serious: Yes (Other)
  Sender: FDA-Public Use
  Company Number: GB-MHRA-MED-202301050936276110-VLMBZ

PATIENT
  Age: 70 Year
  Sex: Male
  Weight: 104 kg

DRUGS (2)
  1. BICALUTAMIDE [Suspect]
     Active Substance: BICALUTAMIDE
     Indication: Adverse drug reaction
     Dosage: 150 MILLIGRAM DAILY; 150 MG ONCE DAILY;
     Route: 065
     Dates: start: 20220830, end: 20221214
  2. BICALUTAMIDE [Suspect]
     Active Substance: BICALUTAMIDE
     Indication: Prostate cancer

REACTIONS (1)
  - Anticipatory anxiety [Recovered/Resolved]

NARRATIVE: CASE EVENT DATE: 20221010
